FAERS Safety Report 18920838 (Version 1)
Quarter: 2021Q1

REPORT INFORMATION
  Report Type: Spontaneous
  Country: IT (occurrence: IT)
  Receive Date: 20210222
  Receipt Date: 20210222
  Transmission Date: 20210420
  Serious: Yes (Life-Threatening, Hospitalization, Other)
  Sender: FDA-Public Use
  Company Number: IT-ALVOGEN-2021-ALVOGEN-116556

PATIENT
  Age: 18 Year
  Sex: Female

DRUGS (9)
  1. PYRIDOSTIGMINE [Concomitant]
     Active Substance: PYRIDOSTIGMINE
     Indication: MYASTHENIA GRAVIS
     Dosage: DURING DAYTIME
     Route: 048
  2. ONDANSETRON [Concomitant]
     Active Substance: ONDANSETRON
     Indication: CHEMOTHERAPY SIDE EFFECT PROPHYLAXIS
     Route: 042
  3. PREDNISONE. [Concomitant]
     Active Substance: PREDNISONE
     Indication: MYASTHENIA GRAVIS
     Route: 048
  4. DEXAMETHASONE. [Concomitant]
     Active Substance: DEXAMETHASONE
     Indication: CHEMOTHERAPY SIDE EFFECT PROPHYLAXIS
     Route: 042
  5. CYCLOPHOSPHAMIDE. [Suspect]
     Active Substance: CYCLOPHOSPHAMIDE
     Indication: THYMOMA
     Dosage: 500 MG/M2
     Route: 042
  6. LEUPRORELIN [Concomitant]
     Active Substance: LEUPROLIDE ACETATE
     Indication: HORMONE SUPPRESSION THERAPY
  7. IMMUNOGLOBULINS NOS [Concomitant]
     Active Substance: IMMUNE GLOBULIN NOS
     Indication: MYASTHENIA GRAVIS
     Dosage: 0.4 G/KG FOR 5 DAYS
     Route: 042
  8. DOXORUBICIN [Suspect]
     Active Substance: DOXORUBICIN
     Indication: THYMOMA
     Dosage: 50 MG/M2
     Route: 042
  9. CISPLATIN. [Suspect]
     Active Substance: CISPLATIN
     Indication: THYMOMA
     Route: 042

REACTIONS (4)
  - Acute respiratory failure [Recovered/Resolved]
  - Myasthenia gravis crisis [Recovered/Resolved]
  - Therapy partial responder [Unknown]
  - Febrile neutropenia [Recovered/Resolved]
